FAERS Safety Report 8896613 (Version 1)
Quarter: 2012Q4

REPORT INFORMATION
  Report Type: Spontaneous
  Country: US (occurrence: None)
  Receive Date: 20121107
  Receipt Date: 20121107
  Transmission Date: 20130627
  Serious: Yes (Other)
  Sender: FDA-Public Use
  Company Number: None

PATIENT
  Sex: Male
  Weight: 81.65 kg

DRUGS (1)
  1. MELOXICAM 7.5 [Suspect]
     Indication: KNEE PAIN
     Dates: start: 20121008, end: 20121009

REACTIONS (5)
  - Paraesthesia [None]
  - Feeling abnormal [None]
  - Formication [None]
  - Spinal disorder [None]
  - Arthropathy [None]
